FAERS Safety Report 8539289-6 (Version None)
Quarter: 2012Q3

REPORT INFORMATION
  Report Type: 
  Country: None (occurrence: None)
  Receive Date: 20120726
  Receipt Date: 20120220
  Transmission Date: 20120928
  Serious: No
  Sender: FDA-Public Use
  Company Number: US-ASTRAZENECA-2011SE44513

PATIENT
  Age: 58 Year
  Sex: Female
  Weight: 61.2 kg

DRUGS (5)
  1. KLONOPIN [Concomitant]
  2. SEROQUEL XR [Suspect]
     Indication: BIPOLAR DISORDER
     Route: 048
  3. GEMFIBROZIL [Concomitant]
  4. SEROQUEL XR [Suspect]
     Route: 048
  5. LISINOPRIL [Concomitant]
     Route: 048

REACTIONS (7)
  - DEPERSONALISATION [None]
  - ADVERSE EVENT [None]
  - DRUG DOSE OMISSION [None]
  - FEAR [None]
  - PANIC REACTION [None]
  - ACTIVITIES OF DAILY LIVING IMPAIRED [None]
  - THERAPEUTIC RESPONSE UNEXPECTED [None]
